FAERS Safety Report 23570130 (Version 6)
Quarter: 2024Q4

REPORT INFORMATION
  Report Type: Spontaneous
  Country: DE (occurrence: DE)
  Receive Date: 20240227
  Receipt Date: 20241011
  Transmission Date: 20250114
  Serious: Yes (Hospitalization)
  Sender: NOVARTIS
  Company Number: None

PATIENT
  Age: 7 Year
  Sex: Male
  Weight: 29 kg

DRUGS (12)
  1. CYCLOSPORINE [Suspect]
     Active Substance: CYCLOSPORINE
     Indication: Immunosuppression
     Dosage: 0.76 ML, QD, (EVERY DAYS 2 SEPARATED DOSES)
     Route: 048
  2. CYCLOSPORINE [Suspect]
     Active Substance: CYCLOSPORINE
     Dosage: UNK (2 INTO 0.38 ML)
     Route: 048
  3. PREDNISOLONE [Suspect]
     Active Substance: PREDNISOLONE
     Indication: Product used for unknown indication
     Dosage: 2 DOSAGE FORM, QD, ( EVERY DAYS 2 SEPARATED DOSES)
     Route: 048
  4. PREDNISOLONE [Suspect]
     Active Substance: PREDNISOLONE
     Dosage: UNK, BID
     Route: 048
  5. CELLCEPT [Suspect]
     Active Substance: MYCOPHENOLATE MOFETIL
     Indication: Immunosuppressant drug therapy
     Dosage: 6 DOSAGE FORM, QD (DAILY DOSE 6 ML MILLILITRE(S) EVERY DAYS 2 SEPARATED DOSES)
     Route: 048
  6. CELLCEPT [Suspect]
     Active Substance: MYCOPHENOLATE MOFETIL
     Dosage: 6 ML, QD (3 ML BID)
     Route: 048
  7. ENALAPRIL [Concomitant]
     Active Substance: ENALAPRIL
     Indication: Hypertension
     Dosage: 1 DOSAGE FORM, QD, (DAILY DOSE: 1 ML MILLILITRE(S) EVERY DAYS)
     Route: 048
  8. AMLODIPINE BESYLATE [Concomitant]
     Active Substance: AMLODIPINE BESYLATE
     Indication: Hypertension
     Dosage: 1 DOSAGE FORM, QD, (DAILY DOSE: 1 DF DOSAGE FORM EVERY DAYS 2 SEPARATED DOSES)
     Route: 048
  9. VIGANTOL [Concomitant]
     Indication: Vitamin D deficiency
     Dosage: 500 DOSAGE FORM, QD, (DAILY DOSE: 500 IU INTERNATIONAL UNIT(S) EVERY DAYS)
     Route: 048
  10. VIGANTOL [Concomitant]
     Dosage: 500 DOSAGE FORM, QD, (DAILY DOSE: 500 IU INTERNATIONAL UNIT(S) EVERY)
     Route: 048
  11. URSODIOL [Concomitant]
     Active Substance: URSODIOL
     Indication: Congenital absence of bile ducts
     Dosage: 10 DOSAGE FORM, QD, (DAILY DOSE: 10 ML MILLILITRE(S) EVERY DAYS 2 SEPARATED DOSES)
     Route: 048
  12. URSODIOL [Concomitant]
     Active Substance: URSODIOL
     Dosage: 10 DOSAGE FORM, QD, (DAILY DOSE: 10 ML MILLILITRE(S) EVERY DAYS 2 SEPARATED DOSES)
     Route: 048

REACTIONS (3)
  - Influenza [Not Recovered/Not Resolved]
  - Cough [Not Recovered/Not Resolved]
  - Pyrexia [Not Recovered/Not Resolved]

NARRATIVE: CASE EVENT DATE: 20200307
